FAERS Safety Report 15548631 (Version 3)
Quarter: 2018Q4

REPORT INFORMATION
  Report Type: Spontaneous
  Country: US (occurrence: US)
  Receive Date: 20181025
  Receipt Date: 20181031
  Transmission Date: 20190205
  Serious: Yes (Other)
  Sender: FDA-Public Use
  Company Number: US-AMGEN-USASP2018148005

PATIENT
  Sex: Female

DRUGS (5)
  1. METHOTREXATE. [Concomitant]
     Active Substance: METHOTREXATE
     Indication: FELTY^S SYNDROME
     Dosage: UNK
     Route: 048
     Dates: start: 2008, end: 201309
  2. DICLOFENAC SODIUM. [Concomitant]
     Active Substance: DICLOFENAC SODIUM
     Dosage: UNK
  3. ENBREL [Suspect]
     Active Substance: ETANERCEPT
     Indication: FELTY^S SYNDROME
     Dosage: UNK
     Route: 065
     Dates: start: 2008, end: 201309
  4. PREDNISONE. [Concomitant]
     Active Substance: PREDNISONE
     Dosage: UNK
  5. XELJANZ XR [Concomitant]
     Active Substance: TOFACITINIB CITRATE
     Dosage: 11 MG, QD
     Route: 048

REACTIONS (3)
  - Drug hypersensitivity [Unknown]
  - Off label use [Unknown]
  - Pulmonary toxicity [Unknown]

NARRATIVE: CASE EVENT DATE: 2008
